FAERS Safety Report 7027728-1 (Version None)
Quarter: 2010Q4

REPORT INFORMATION
  Report Type: 
  Country: None (occurrence: None)
  Receive Date: 20101004
  Receipt Date: 20100930
  Transmission Date: 20110411
  Serious: Yes (Death, Other)
  Sender: FDA-Public Use
  Company Number: FR-ABBOTT-10P-056-0674929-00

PATIENT
  Sex: Male

DRUGS (11)
  1. KALETRA [Suspect]
     Indication: HIV INFECTION
     Route: 048
     Dates: start: 20100708, end: 20100909
  2. NORVIR [Suspect]
     Indication: HIV INFECTION
     Dates: start: 20100909, end: 20100918
  3. EPIVIR [Suspect]
     Indication: HIV INFECTION
     Route: 048
     Dates: start: 20100708, end: 20100918
  4. ZIAGEN [Suspect]
     Indication: HIV INFECTION
     Route: 048
     Dates: start: 20100708, end: 20100921
  5. ISENTRESS [Suspect]
     Indication: HIV INFECTION
     Dates: start: 20100708, end: 20100921
  6. LARGACTIL [Suspect]
     Indication: PRODUCT USED FOR UNKNOWN INDICATION
     Dosage: 5 DROPS
     Route: 048
     Dates: start: 20100902, end: 20100918
  7. AMIKIN [Suspect]
     Indication: PRODUCT USED FOR UNKNOWN INDICATION
     Route: 042
     Dates: start: 20100612, end: 20100626
  8. AMIKIN [Suspect]
     Dates: start: 20100908, end: 20100915
  9. PREZISTA [Suspect]
     Indication: HIV INFECTION
     Dates: start: 20100909, end: 20100918
  10. BACTRIM [Concomitant]
     Indication: PRODUCT USED FOR UNKNOWN INDICATION
     Dates: start: 20100613, end: 20100830
  11. TEMESTA [Concomitant]
     Indication: PRODUCT USED FOR UNKNOWN INDICATION
     Dates: start: 20100818, end: 20100918

REACTIONS (7)
  - CELL DEATH [None]
  - CHILLS [None]
  - CHOLESTASIS [None]
  - DIARRHOEA [None]
  - HEPATIC FAILURE [None]
  - HEPATITIS FULMINANT [None]
  - PYREXIA [None]
